FAERS Safety Report 9292330 (Version 1)
Quarter: 2013Q2

REPORT INFORMATION
  Report Type: Spontaneous
  Country: US (occurrence: None)
  Receive Date: 20130515
  Receipt Date: 20130515
  Transmission Date: 20140414
  Serious: Yes (Hospitalization)
  Sender: FDA-Public Use
  Company Number: None

PATIENT
  Age: 53 Year
  Sex: Female
  Weight: 83.46 kg

DRUGS (1)
  1. LORAZEPAM [Suspect]
     Indication: ANXIETY
     Dosage: 1 TAB, TWICE  DAILY
     Dates: start: 20130320, end: 20130327

REACTIONS (12)
  - Palpitations [None]
  - Dyspnoea [None]
  - Frequent bowel movements [None]
  - Asthenia [None]
  - Nervousness [None]
  - Nausea [None]
  - Dizziness [None]
  - Urticaria [None]
  - Mental impairment [None]
  - Apparent death [None]
  - Product quality issue [None]
  - Quality of life decreased [None]
